FAERS Safety Report 5040741-9 (Version None)
Quarter: 2006Q3

REPORT INFORMATION
  Report Type: 
  Country: None (occurrence: None)
  Receive Date: 20060703
  Receipt Date: 20060607
  Transmission Date: 20061208
  Serious: Yes (Hospitalization, Other)
  Sender: FDA-Public Use
  Company Number: PHNR2006AU00806

PATIENT
  Age: 63 Year
  Sex: Male

DRUGS (8)
  1. RANITIDINE [Concomitant]
  2. SEPTRIN [Concomitant]
  3. PREDNISOLONE [Concomitant]
  4. MYCOPHENOLATE MOFETIL [Concomitant]
  5. NEORAL [Suspect]
     Indication: RENAL TRANSPLANT
     Dosage: 100 MG, BID
     Dates: start: 20060420
  6. NEORAL [Suspect]
     Dosage: 50 MG, BID
  7. DILTIAZEM HCL [Concomitant]
  8. CERTICAN [Suspect]
     Indication: RENAL TRANSPLANT
     Dosage: 0.7 MG, BID
     Dates: start: 20060602

REACTIONS (3)
  - ARRHYTHMIA [None]
  - CHEST DISCOMFORT [None]
  - SUPRAVENTRICULAR TACHYCARDIA [None]
